FAERS Safety Report 6371302-7 (Version None)
Quarter: 2009Q3

REPORT INFORMATION
  Report Type: 
  Country: None (occurrence: None)
  Receive Date: 20090923
  Receipt Date: 20090918
  Transmission Date: 20100115
  Serious: No
  Sender: FDA-Public Use
  Company Number: US-JNJFOC-20090802114

PATIENT
  Sex: Female
  Weight: 66.23 kg

DRUGS (12)
  1. DURAGESIC-100 [Suspect]
     Indication: BONE PAIN
     Route: 062
  2. SINGULAIR [Concomitant]
     Indication: MULTIPLE ALLERGIES
     Route: 048
  3. NEXIUM [Concomitant]
     Indication: GASTROOESOPHAGEAL REFLUX DISEASE
     Route: 048
  4. SYNTHROID [Concomitant]
     Indication: THYROID DISORDER
     Dosage: 0.137 MG
     Route: 048
  5. CRESTOR [Concomitant]
     Indication: BLOOD CHOLESTEROL INCREASED
     Route: 048
  6. KLONOPIN [Concomitant]
     Indication: DEPRESSION
     Route: 048
  7. LEXAPRO [Concomitant]
     Indication: DEPRESSION
     Route: 048
  8. LAMICTAL [Concomitant]
     Indication: DRUG THERAPY
     Route: 048
  9. TRAZODONE [Concomitant]
     Route: 048
  10. RHINOCORT [Concomitant]
     Indication: MULTIPLE ALLERGIES
     Dosage: ONE SPRAY ONCE A DAY
     Route: 045
  11. MAGNESIUM CITRATE [Concomitant]
     Indication: CONSTIPATION
     Dosage: AS NEEDED
     Route: 048
  12. RELISTOR (METHYLNALTREXONE) [Concomitant]

REACTIONS (3)
  - CONSTIPATION [None]
  - INAPPROPRIATE SCHEDULE OF DRUG ADMINISTRATION [None]
  - WITHDRAWAL SYNDROME [None]
